FAERS Safety Report 4777527-6 (Version None)
Quarter: 2005Q3

REPORT INFORMATION
  Report Type: 
  Country: None (occurrence: None)
  Receive Date: 20050923
  Receipt Date: 20050919
  Transmission Date: 20060218
  Serious: Yes (Other)
  Sender: FDA-Public Use
  Company Number: PHFR2005GB03126

PATIENT
  Sex: Female

DRUGS (2)
  1. FEMARA [Suspect]
     Indication: BREAST CANCER
     Route: 048
     Dates: start: 20050901
  2. AMITRIPTYLINE HCL [Concomitant]
     Indication: URINARY TRACT DISORDER
     Dosage: 10MG/DAY
     Route: 065

REACTIONS (6)
  - ANGER [None]
  - CONSTIPATION [None]
  - DEPRESSION [None]
  - DRY MOUTH [None]
  - INSOMNIA [None]
  - PSYCHOMOTOR HYPERACTIVITY [None]
